FAERS Safety Report 8196269-0 (Version None)
Quarter: 2012Q1

REPORT INFORMATION
  Report Type: 
  Country: None (occurrence: None)
  Receive Date: 20120309
  Receipt Date: 20120307
  Transmission Date: 20120608
  Serious: Yes (Hospitalization)
  Sender: FDA-Public Use
  Company Number: US-PFIZER INC-2012061621

PATIENT
  Sex: Female

DRUGS (3)
  1. XANAX [Suspect]
     Dosage: 0.5 MG, 1X/DAY
     Route: 048
  2. PERCOCET [Concomitant]
     Dosage: UNK
  3. XANAX [Suspect]
     Indication: ANXIETY
     Dosage: SIX TABLETS OF 1MG ORALLY ONCE A DAY
     Route: 048

REACTIONS (1)
  - WITHDRAWAL SYNDROME [None]
